FAERS Safety Report 16254388 (Version 4)
Quarter: 2020Q4

REPORT INFORMATION
  Report Type: Other
  Country: IE (occurrence: IE)
  Receive Date: 20190430
  Receipt Date: 20201016
  Transmission Date: 20210113
  Serious: Yes (Death)
  Sender: FDA-Public Use
  Company Number: IE-ROCHE-2308012

PATIENT
  Age: 55 Year
  Sex: Male
  Weight: 70 kg

DRUGS (3)
  1. MABTHERA [Suspect]
     Active Substance: RITUXIMAB
     Route: 065
     Dates: start: 2017, end: 20171201
  2. MABTHERA [Suspect]
     Active Substance: RITUXIMAB
     Dosage: 2 CYCLES, 2 VIALS OF 500 MG, 4 VIALS OF 100 MG
     Route: 042
  3. MABTHERA [Suspect]
     Active Substance: RITUXIMAB
     Indication: NODULAR LYMPHOCYTE PREDOMINANT HODGKIN LYMPHOMA
     Route: 065
     Dates: start: 20140609

REACTIONS (1)
  - Nodular lymphocyte predominant Hodgkin lymphoma [Fatal]

NARRATIVE: CASE EVENT DATE: 201902
